FAERS Safety Report 6327871-6 (Version None)
Quarter: 2009Q3

REPORT INFORMATION
  Report Type: 
  Country: None (occurrence: None)
  Receive Date: 20090824
  Receipt Date: 20090807
  Transmission Date: 20100115
  Serious: Yes (Life-Threatening)
  Sender: FDA-Public Use
  Company Number: 8040839

PATIENT
  Age: 14 Year
  Sex: Male

DRUGS (2)
  1. EQUASYM [Suspect]
     Dates: start: 19940101
  2. EQUASYM [Suspect]
     Dosage: PO

REACTIONS (4)
  - ALANINE AMINOTRANSFERASE INCREASED [None]
  - INTENTIONAL OVERDOSE [None]
  - PSYCHOTIC DISORDER [None]
  - SUICIDE ATTEMPT [None]
